FAERS Safety Report 5996433-2 (Version None)
Quarter: 2008Q4

REPORT INFORMATION
  Report Type: 
  Country: None (occurrence: None)
  Receive Date: 20081212
  Receipt Date: 20081017
  Transmission Date: 20090506
  Serious: No
  Sender: FDA-Public Use
  Company Number: US-ABBOTT-08P-163-0482373-00

PATIENT
  Sex: Female

DRUGS (4)
  1. HUMIRA [Suspect]
     Indication: RHEUMATOID ARTHRITIS
     Route: 058
     Dates: start: 20030101, end: 20060101
  2. HUMIRA [Suspect]
     Dates: start: 20060101
  3. MULTIPLE MEDICATIONS (22- DECLINED TO PROVIDE) [Concomitant]
     Indication: DRUG USE FOR UNKNOWN INDICATION
  4. FIBERTABS [Concomitant]
     Indication: DRUG USE FOR UNKNOWN INDICATION

REACTIONS (3)
  - FALL [None]
  - FRACTURE [None]
  - PAIN [None]
